FAERS Safety Report 14278278 (Version 1)
Quarter: 2017Q4

REPORT INFORMATION
  Report Type: Spontaneous
  Country: US (occurrence: US)
  Receive Date: 20171212
  Receipt Date: 20171212
  Transmission Date: 20180321
  Serious: No
  Sender: FDA-Public Use
  Company Number: US-SHIRE-US201732228

PATIENT
  Age: 61 Year
  Sex: Female

DRUGS (2)
  1. CUVITRU [Suspect]
     Active Substance: HUMAN IMMUNOGLOBULIN G
     Dosage: 20, 2X A WEEK
     Route: 058
     Dates: start: 20171107
  2. CUVITRU [Suspect]
     Active Substance: HUMAN IMMUNOGLOBULIN G
     Indication: PRODUCT USED FOR UNKNOWN INDICATION
     Dosage: 20, 2X A WEEK
     Route: 058
     Dates: start: 20171107

REACTIONS (1)
  - Pain [Unknown]

NARRATIVE: CASE EVENT DATE: 20171107
